FAERS Safety Report 14955030 (Version 2)
Quarter: 2018Q2

REPORT INFORMATION
  Report Type: Report from Study
  Country: None (occurrence: CO)
  Receive Date: 20180531
  Receipt Date: 20180617
  Transmission Date: 20180711
  Serious: Yes (Hospitalization, Other)
  Sender: FDA-Public Use
  Company Number: CO-ABBVIE-18K-036-2372126-00

PATIENT
  Age: 27 Year
  Sex: Male
  Weight: 86 kg

DRUGS (1)
  1. HUMIRA [Suspect]
     Active Substance: ADALIMUMAB
     Indication: COLITIS ULCERATIVE
     Route: 058
     Dates: start: 20130902, end: 20180416

REACTIONS (3)
  - Gastrointestinal inflammation [Recovering/Resolving]
  - Cholelithiasis [Recovering/Resolving]
  - Mood altered [Unknown]

NARRATIVE: CASE EVENT DATE: 2018
